FAERS Safety Report 8951106 (Version 1)
Quarter: 2012Q4

REPORT INFORMATION
  Report Type: Report from Study
  Country: BR (occurrence: BR)
  Receive Date: 20121207
  Receipt Date: 20121207
  Transmission Date: 20130627
  Serious: Yes (Hospitalization)
  Sender: FDA-Public Use
  Company Number: BR-SANOFI-AVENTIS-2012SA088046

PATIENT
  Age: 33 Year
  Sex: Female
  Weight: 92 kg

DRUGS (6)
  1. DOCETAXEL [Suspect]
     Indication: HER-2 POSITIVE BREAST CANCER
     Dosage: form: vials
dose level: 60 mg/m2
     Route: 042
     Dates: start: 20090922
  2. DOCETAXEL [Suspect]
     Indication: HER-2 POSITIVE BREAST CANCER
     Dosage: form: vials
dose level: 60 mg/m2
     Route: 042
     Dates: start: 20090922
  3. TRASTUZUMAB [Suspect]
     Indication: HER-2 POSITIVE BREAST CANCER
     Dosage: form: vials
dose level: 6 mg/kg
     Route: 042
     Dates: start: 20090922
  4. BEVACIZUMAB [Suspect]
     Indication: HER-2 POSITIVE BREAST CANCER
     Dosage: dose level: 15 mg/kg
form: vials
     Route: 042
     Dates: start: 20090922
  5. CARBOPLATIN [Suspect]
     Indication: HER-2 POSITIVE BREAST CANCER
     Dosage: dsoe level: 5 AUC
form: vials
     Route: 042
     Dates: start: 20090922
  6. DEXAMETHASONE [Suspect]
     Indication: NAUSEA PROPHYLAXIS
     Route: 065
     Dates: start: 20100107, end: 20100111

REACTIONS (3)
  - Mucosal inflammation [Recovered/Resolved]
  - Blister infected [Recovered/Resolved]
  - Gastritis [Recovered/Resolved]
